FAERS Safety Report 19200863 (Version 42)
Quarter: 2025Q1

REPORT INFORMATION
  Report Type: Report from Study
  Country: US (occurrence: US)
  Receive Date: 20210430
  Receipt Date: 20250108
  Transmission Date: 20250409
  Serious: Yes (Hospitalization, Other)
  Sender: TAKEDA
  Company Number: US-SHIRE-US201935385

PATIENT
  Age: 52 Year
  Sex: Female

DRUGS (37)
  1. LANADELUMAB [Suspect]
     Active Substance: LANADELUMAB
     Indication: Immune system disorder
     Dosage: 300 MILLIGRAM, Q2WEEKS
     Dates: start: 20180829
  2. LANADELUMAB [Suspect]
     Active Substance: LANADELUMAB
     Dosage: 300 MILLIGRAM, Q2WEEKS
     Dates: start: 201808
  3. LANADELUMAB [Suspect]
     Active Substance: LANADELUMAB
     Dosage: 300 MILLIGRAM, Q2WEEKS
     Dates: start: 20180910
  4. LANADELUMAB [Suspect]
     Active Substance: LANADELUMAB
     Dosage: 300 MILLIGRAM, Q2WEEKS
     Dates: start: 20180911
  5. LANADELUMAB [Suspect]
     Active Substance: LANADELUMAB
     Dosage: 300 MILLIGRAM, Q2WEEKS
     Dates: start: 201809
  6. LANADELUMAB [Suspect]
     Active Substance: LANADELUMAB
     Dosage: 2 MILLILITER, Q2WEEKS
     Dates: start: 20181009
  7. LANADELUMAB [Suspect]
     Active Substance: LANADELUMAB
     Dosage: 300 MILLIGRAM, Q2WEEKS
     Dates: start: 201810
  8. LANADELUMAB [Suspect]
     Active Substance: LANADELUMAB
     Dosage: 300 MILLIGRAM, Q2WEEKS
     Dates: start: 2018
  9. LANADELUMAB [Suspect]
     Active Substance: LANADELUMAB
     Dosage: 300 MILLIGRAM, Q2WEEKS
     Dates: start: 201907
  10. LANADELUMAB [Suspect]
     Active Substance: LANADELUMAB
     Dosage: 300 MILLIGRAM, Q2WEEKS
     Dates: start: 20200611
  11. LANADELUMAB [Suspect]
     Active Substance: LANADELUMAB
     Dosage: 300 MILLIGRAM, Q2WEEKS
     Dates: start: 202006
  12. LANADELUMAB [Suspect]
     Active Substance: LANADELUMAB
  13. LANADELUMAB [Suspect]
     Active Substance: LANADELUMAB
     Dosage: 300 MILLIGRAM, Q2WEEKS
     Dates: start: 202105
  14. LANADELUMAB [Suspect]
     Active Substance: LANADELUMAB
     Dosage: 300 MILLIGRAM, Q2WEEKS
  15. FIRAZYR [Suspect]
     Active Substance: ICATIBANT ACETATE
     Indication: Immune system disorder
  16. FIRAZYR [Suspect]
     Active Substance: ICATIBANT ACETATE
  17. FIRAZYR [Suspect]
     Active Substance: ICATIBANT ACETATE
  18. FIRAZYR [Suspect]
     Active Substance: ICATIBANT ACETATE
  19. FIRAZYR [Suspect]
     Active Substance: ICATIBANT ACETATE
  20. FIRAZYR [Suspect]
     Active Substance: ICATIBANT ACETATE
  21. FIRAZYR [Suspect]
     Active Substance: ICATIBANT ACETATE
  22. FIRAZYR [Suspect]
     Active Substance: ICATIBANT ACETATE
  23. FIRAZYR [Suspect]
     Active Substance: ICATIBANT ACETATE
  24. FIRAZYR [Suspect]
     Active Substance: ICATIBANT ACETATE
  25. FIRAZYR [Suspect]
     Active Substance: ICATIBANT ACETATE
  26. FIRAZYR [Suspect]
     Active Substance: ICATIBANT ACETATE
  27. FIRAZYR [Suspect]
     Active Substance: ICATIBANT ACETATE
  28. FIRAZYR [Suspect]
     Active Substance: ICATIBANT ACETATE
  29. KALBITOR [Suspect]
     Active Substance: ECALLANTIDE
     Indication: Immune system disorder
  30. KALBITOR [Suspect]
     Active Substance: ECALLANTIDE
  31. KALBITOR [Suspect]
     Active Substance: ECALLANTIDE
  32. KALBITOR [Suspect]
     Active Substance: ECALLANTIDE
  33. KALBITOR [Suspect]
     Active Substance: ECALLANTIDE
  34. KALBITOR [Suspect]
     Active Substance: ECALLANTIDE
  35. KALBITOR [Suspect]
     Active Substance: ECALLANTIDE
  36. COVID-19 VACCINE NOS [Suspect]
     Active Substance: COVID-19 VACCINE
     Indication: COVID-19 immunisation
  37. RUCONEST [Concomitant]
     Active Substance: CONESTAT ALFA

REACTIONS (14)
  - COVID-19 [Unknown]
  - Dyspnoea [Unknown]
  - Seizure [Recovered/Resolved]
  - Loss of consciousness [Recovering/Resolving]
  - Hereditary angioedema [Recovered/Resolved]
  - Weight increased [Unknown]
  - Weight decreased [Unknown]
  - Stress [Unknown]
  - Fall [Unknown]
  - Rib fracture [Unknown]
  - Bone contusion [Unknown]
  - Tooth disorder [Unknown]
  - Incorrect route of product administration [Unknown]
  - Blister [Unknown]

NARRATIVE: CASE EVENT DATE: 20191015
